FAERS Safety Report 22597165 (Version 2)
Quarter: 2023Q4

REPORT INFORMATION
  Report Type: Report from Study
  Country: DE (occurrence: DE)
  Receive Date: 20230614
  Receipt Date: 20231123
  Transmission Date: 20240109
  Serious: Yes (Death)
  Sender: FDA-Public Use
  Company Number: DE-ABBVIE-5287644

PATIENT
  Age: 55 Year
  Sex: Male

DRUGS (1)
  1. SKYRIZI [Suspect]
     Active Substance: RISANKIZUMAB-RZAA
     Indication: Psoriasis
     Route: 058
     Dates: start: 20220720, end: 202302

REACTIONS (1)
  - Death [Fatal]

NARRATIVE: CASE EVENT DATE: 20230522
